FAERS Safety Report 23803261 (Version 3)
Quarter: 2024Q4

REPORT INFORMATION
  Report Type: Report from Study
  Country: US (occurrence: US)
  Receive Date: 20240501
  Receipt Date: 20241202
  Transmission Date: 20250115
  Serious: Yes (Other)
  Sender: ROCHE
  Company Number: US-ROCHE-3550292

PATIENT
  Age: 68 Year
  Sex: Male

DRUGS (17)
  1. ACTEMRA [Suspect]
     Active Substance: TOCILIZUMAB
     Indication: Giant cell arteritis
     Dosage: DRUG END DATE 13-SEP-2025
     Route: 058
  2. ACTEMRA [Suspect]
     Active Substance: TOCILIZUMAB
  3. ACTEMRA ACTPEN [Suspect]
     Active Substance: TOCILIZUMAB
     Indication: Giant cell arteritis
     Route: 058
  4. ACTEMRA ACTPEN [Suspect]
     Active Substance: TOCILIZUMAB
     Indication: Polymyalgia rheumatica
  5. ACTEMRA ACTPEN [Suspect]
     Active Substance: TOCILIZUMAB
     Indication: Giant cell arteritis
  6. PREDNISOLONE [Concomitant]
     Active Substance: PREDNISOLONE
  7. AMLODIPINE [Concomitant]
     Active Substance: AMLODIPINE BESYLATE
  8. FINASTERIDE [Concomitant]
     Active Substance: FINASTERIDE
  9. NOVOLOG [Concomitant]
     Active Substance: INSULIN ASPART
  10. LISINOPRIL [Concomitant]
     Active Substance: LISINOPRIL
  11. METFORMIN [Concomitant]
     Active Substance: METFORMIN HYDROCHLORIDE
  12. METOPROLOL [Concomitant]
     Active Substance: METOPROLOL
  13. BACTRIM [Concomitant]
     Active Substance: SULFAMETHOXAZOLE\TRIMETHOPRIM
  14. ALENDRONATE [Concomitant]
     Active Substance: ALENDRONATE SODIUM
  15. VASCEPA [Concomitant]
     Active Substance: ICOSAPENT ETHYL
  16. TRESIBA [Concomitant]
     Active Substance: INSULIN DEGLUDEC
  17. TRULICITY [Concomitant]
     Active Substance: DULAGLUTIDE

REACTIONS (10)
  - Prostate cancer [Unknown]
  - Neuropathy peripheral [Unknown]
  - Balance disorder [Unknown]
  - Ill-defined disorder [Unknown]
  - Hernia [Unknown]
  - Blindness unilateral [Unknown]
  - Visual impairment [Unknown]
  - Blood pressure abnormal [Unknown]
  - Diabetes mellitus [Unknown]
  - Blood cholesterol increased [Unknown]
